FAERS Safety Report 12145662 (Version 1)
Quarter: 2016Q1

REPORT INFORMATION
  Report Type: Spontaneous
  Country: US (occurrence: None)
  Receive Date: 20160303
  Receipt Date: 20160303
  Transmission Date: 20160526
  Serious: Yes (Hospitalization)
  Sender: FDA-Public Use
  Company Number: None

PATIENT
  Age: 51 Year
  Sex: Male
  Weight: 75 kg

DRUGS (2)
  1. ETOPOSIDE (VP-16) [Suspect]
     Active Substance: ETOPOSIDE
     Dates: end: 20151125
  2. CARBOPLATIN. [Suspect]
     Active Substance: CARBOPLATIN
     Dates: end: 20151125

REACTIONS (5)
  - Vena cava thrombosis [None]
  - Pulmonary mass [None]
  - Febrile neutropenia [None]
  - Cryptococcus test positive [None]
  - Thrombocytopenia [None]

NARRATIVE: CASE EVENT DATE: 20151126
